FAERS Safety Report 16854495 (Version 1)
Quarter: 2019Q3

REPORT INFORMATION
  Report Type: Spontaneous
  Country: US (occurrence: US)
  Receive Date: 20190805
  Receipt Date: 20190805
  Transmission Date: 20191005
  Serious: No
  Sender: FDA-Public Use
  Company Number: None

PATIENT
  Age: 75 Year
  Sex: Male

DRUGS (1)
  1. ENBREL [Suspect]
     Active Substance: ETANERCEPT
     Dates: start: 20190101

REACTIONS (4)
  - Nephrolithiasis [None]
  - Ulcer [None]
  - Knee operation [None]
  - Haemorrhage [None]

NARRATIVE: CASE EVENT DATE: 20190301
